FAERS Safety Report 16999085 (Version 1)
Quarter: 2019Q4

REPORT INFORMATION
  Report Type: Report from Study
  Country: HN (occurrence: HN)
  Receive Date: 20191106
  Receipt Date: 20191106
  Transmission Date: 20200122
  Serious: Yes (Other)
  Sender: FDA-Public Use
  Company Number: PHHY2018HN176382

PATIENT
  Age: 64 Year
  Sex: Female

DRUGS (4)
  1. EXFORGE [Suspect]
     Active Substance: AMLODIPINE BESYLATE\VALSARTAN
     Indication: PRODUCT USED FOR UNKNOWN INDICATION
     Dosage: 1 DF (AMLODIPINE 10 MG ,VALSARTAN 320 MG)
     Route: 065
  2. VYMADA [Suspect]
     Active Substance: SACUBITRIL\VALSARTAN
     Dosage: 100 UNK
     Route: 065
  3. VYMADA [Suspect]
     Active Substance: SACUBITRIL\VALSARTAN
     Indication: PRODUCT USED FOR UNKNOWN INDICATION
     Dosage: 50 MG
     Route: 065
  4. GALVUS MET [Suspect]
     Active Substance: METFORMIN HYDROCHLORIDE\VILDAGLIPTIN
     Indication: PRODUCT USED FOR UNKNOWN INDICATION
     Dosage: (METFORMIN 1000 MG, VILDAGLIPTIN 50 MG)
     Route: 065

REACTIONS (8)
  - Cardiac disorder [Unknown]
  - Visual impairment [Unknown]
  - Peripheral swelling [Unknown]
  - Fluid retention [Unknown]
  - Dysphonia [Unknown]
  - Pulmonary oedema [Unknown]
  - Drug intolerance [Unknown]
  - Renal disorder [Unknown]
